FAERS Safety Report 18699575 (Version 1)
Quarter: 2021Q1

REPORT INFORMATION
  Report Type: Spontaneous
  Country: UA (occurrence: UA)
  Receive Date: 20210105
  Receipt Date: 20210105
  Transmission Date: 20210419
  Serious: Yes (Other)
  Sender: FDA-Public Use
  Company Number: UA-DEXPHARM-20201159

PATIENT
  Age: 45 Year
  Sex: Female

DRUGS (2)
  1. LAFAXIN XR 75 MG [Suspect]
     Active Substance: VENLAFAXINE HYDROCHLORIDE
     Indication: PANIC ATTACK
     Dosage: 1 TAB (75 MG) ONCE A DAY
     Route: 048
     Dates: start: 20201208, end: 20201209
  2. QUETIRON 25 [Interacting]
     Active Substance: QUETIAPINE
     Dosage: 1 TAB (25 MG) ONCE A DAY
     Dates: start: 20201208, end: 20201209

REACTIONS (2)
  - Disorientation [Unknown]
  - Drug interaction [Unknown]

NARRATIVE: CASE EVENT DATE: 20201208
